FAERS Safety Report 9587123 (Version 3)
Quarter: 2013Q4

REPORT INFORMATION
  Report Type: Spontaneous
  Country: US (occurrence: US)
  Receive Date: 20131003
  Receipt Date: 20131112
  Transmission Date: 20140711
  Serious: No
  Sender: FDA-Public Use
  Company Number: US-009507513-1310USA001030

PATIENT
  Sex: Female

DRUGS (3)
  1. MK-0000 [Suspect]
     Dosage: UNK
  2. GONADOTROPIN, CHORIONIC [Suspect]
     Indication: IN VITRO FERTILISATION
     Dosage: 500-799 IU
  3. GONADOTROPIN, CHORIONIC [Suspect]
     Indication: INFERTILITY

REACTIONS (1)
  - Maternal exposure before pregnancy [Unknown]
